FAERS Safety Report 25264625 (Version 1)
Quarter: 2025Q2

REPORT INFORMATION
  Report Type: Report from Study
  Country: BR (occurrence: BR)
  Receive Date: 20250502
  Receipt Date: 20250502
  Transmission Date: 20250716
  Serious: Yes (Life-Threatening, Other)
  Sender: TAKEDA
  Company Number: BR-TAKEDA-2024TUS048636

PATIENT
  Age: 69 Year
  Sex: Female

DRUGS (1)
  1. VEDOLIZUMAB [Suspect]
     Active Substance: VEDOLIZUMAB
     Indication: Colitis ulcerative

REACTIONS (11)
  - Dengue fever [Recovered/Resolved]
  - Colitis ulcerative [Recovered/Resolved]
  - Rectal tenesmus [Unknown]
  - Illness [Unknown]
  - Discouragement [Unknown]
  - Depressed mood [Unknown]
  - Anger [Unknown]
  - Tension [Unknown]
  - Abdominal pain [Unknown]
  - Fatigue [Unknown]
  - Drug ineffective [Unknown]

NARRATIVE: CASE EVENT DATE: 20250430
